FAERS Safety Report 16524924 (Version 18)
Quarter: 2022Q1

REPORT INFORMATION
  Report Type: Report from Study
  Country: JP (occurrence: JP)
  Receive Date: 20190703
  Receipt Date: 20220216
  Transmission Date: 20220423
  Serious: Yes (Hospitalization, Disabling, Other)
  Sender: FDA-Public Use
  Company Number: JP-BRISTOL-MYERS SQUIBB COMPANY-BMS-2019-062498

PATIENT
  Age: 77 Year
  Sex: Female
  Weight: 30.9 kg

DRUGS (25)
  1. NIVOLUMAB [Suspect]
     Active Substance: NIVOLUMAB
     Indication: Malignant melanoma
     Dosage: 80 MILLIGRAM
     Route: 041
     Dates: start: 20190401, end: 20190514
  2. NIVOLUMAB [Suspect]
     Active Substance: NIVOLUMAB
     Dosage: 240 MILLIGRAM
     Route: 041
     Dates: start: 20190918, end: 20191113
  3. IPILIMUMAB [Suspect]
     Active Substance: IPILIMUMAB
     Indication: Malignant melanoma
     Dosage: 3.6 MILLIGRAM/KILOGRAM, Q3WK
     Route: 041
     Dates: start: 20190401, end: 20190514
  4. PREDNISOLONE [Suspect]
     Active Substance: PREDNISOLONE
     Indication: Erythema
     Dosage: 10 MILLIGRAM, TID
     Route: 048
     Dates: start: 20190419, end: 20190420
  5. PREDNISOLONE [Suspect]
     Active Substance: PREDNISOLONE
     Dosage: 5 MILLIGRAM
     Route: 048
     Dates: start: 20190425, end: 20190429
  6. PREDNISOLONE [Suspect]
     Active Substance: PREDNISOLONE
     Dosage: 20 MILLIGRAM
     Route: 048
     Dates: start: 20190524, end: 20190526
  7. PREDNISOLONE [Suspect]
     Active Substance: PREDNISOLONE
     Dosage: 30 MILLIGRAM
     Route: 048
     Dates: start: 20190527, end: 20190618
  8. PREDNISOLONE [Suspect]
     Active Substance: PREDNISOLONE
     Dosage: 25 MILLIGRAM
     Route: 048
     Dates: start: 20190619, end: 20190701
  9. PREDNISOLONE [Suspect]
     Active Substance: PREDNISOLONE
     Dosage: 50 MILLIGRAM
     Route: 048
     Dates: start: 20190702, end: 20190716
  10. PREDNISOLONE [Suspect]
     Active Substance: PREDNISOLONE
     Dosage: 40 MILLIGRAM
     Route: 048
     Dates: start: 20190717, end: 20190722
  11. PREDNISOLONE [Suspect]
     Active Substance: PREDNISOLONE
     Dosage: 35 MILLIGRAM
     Route: 048
     Dates: start: 20190723, end: 20190730
  12. PREDNISOLONE [Suspect]
     Active Substance: PREDNISOLONE
     Dosage: 30 MILLIGRAM
     Route: 048
     Dates: start: 20190731, end: 20190809
  13. PREDNISOLONE [Suspect]
     Active Substance: PREDNISOLONE
     Dosage: 25 MILLIGRAM
     Route: 048
     Dates: start: 20190810, end: 20190817
  14. PREDNISOLONE [Suspect]
     Active Substance: PREDNISOLONE
     Dosage: 20 MILLIGRAM
     Route: 048
     Dates: start: 20190818, end: 20190825
  15. PREDNISOLONE [Suspect]
     Active Substance: PREDNISOLONE
     Dosage: 15 MILLIGRAM
     Route: 048
     Dates: start: 20190826, end: 20190909
  16. PREDNISOLONE [Suspect]
     Active Substance: PREDNISOLONE
     Dosage: 12.5 MILLIGRAM
     Route: 048
     Dates: start: 20190910, end: 20190923
  17. PREDNISOLONE [Suspect]
     Active Substance: PREDNISOLONE
     Dosage: 10 MILLIGRAM
     Route: 048
     Dates: start: 20190924, end: 20191007
  18. PREDNISOLONE [Suspect]
     Active Substance: PREDNISOLONE
     Dosage: 7.5 MILLIGRAM
     Route: 048
     Dates: start: 20191008, end: 20191021
  19. PREDNISOLONE [Suspect]
     Active Substance: PREDNISOLONE
     Dosage: 5 MILLIGRAM
     Route: 048
     Dates: start: 20191022, end: 20191121
  20. SULFAMETHOXAZOLE\TRIMETHOPRIM [Suspect]
     Active Substance: SULFAMETHOXAZOLE\TRIMETHOPRIM
     Indication: Infection prophylaxis
     Dosage: 1 DOSAGE FORM, Q3WK
     Route: 048
     Dates: start: 20190605, end: 20190703
  21. GASMOTIN [MOSAPRIDE CITRATE] [Concomitant]
     Indication: Product used for unknown indication
     Dosage: 5 MILLIGRAM, TID
     Route: 048
     Dates: start: 20190307
  22. SODIUM FERROUS CITRATE [Concomitant]
     Active Substance: SODIUM FERROUS CITRATE
     Indication: Product used for unknown indication
     Dosage: 50 MILLIGRAM, BID
     Route: 048
     Dates: start: 20190323
  23. POTASSIUM GLUCONATE [Concomitant]
     Active Substance: POTASSIUM GLUCONATE
     Indication: Product used for unknown indication
     Dosage: 2 GRAM, TID
     Route: 048
     Dates: start: 20190528
  24. MIYA-BM [Concomitant]
     Active Substance: CLOSTRIDIUM BUTYRICUM SPORES STRAIN M-55
     Indication: Product used for unknown indication
     Dosage: UNK UNK, TID
     Route: 048
     Dates: start: 20190529
  25. ALFACALCIDOL [Concomitant]
     Active Substance: ALFACALCIDOL
     Indication: Product used for unknown indication
     Dosage: 0.5 MICROGRAM, QD
     Route: 048
     Dates: start: 20190529

REACTIONS (7)
  - Fulminant type 1 diabetes mellitus [Recovering/Resolving]
  - Immune-mediated enterocolitis [Recovering/Resolving]
  - Hepatitis [Unknown]
  - Thyroiditis [Recovered/Resolved]
  - Muscular weakness [Recovering/Resolving]
  - Rash pruritic [Recovered/Resolved]
  - Erythema [Recovering/Resolving]

NARRATIVE: CASE EVENT DATE: 20190419
